FAERS Safety Report 5199925-1 (Version None)
Quarter: 2007Q1

REPORT INFORMATION
  Report Type: 
  Country: None (occurrence: None)
  Receive Date: 20070103
  Receipt Date: 20061222
  Transmission Date: 20070707
  Serious: Yes (Hospitalization)
  Sender: FDA-Public Use
  Company Number: 234285

PATIENT
  Age: 20 Year
  Sex: Female

DRUGS (1)
  1. RITUXIMAB (RITUXIMAB) CONC FOR SOLUTION FOR INFUSION [Suspect]
     Indication: SYSTEMIC LUPUS ERYTHEMATOSUS
     Dosage: INTRAVENOUS
     Route: 042
     Dates: start: 20061004

REACTIONS (2)
  - CONDITION AGGRAVATED [None]
  - LUPUS NEPHRITIS [None]
